FAERS Safety Report 10581241 (Version 2)
Quarter: 2014Q4

REPORT INFORMATION
  Report Type: Report from Study
  Country: US (occurrence: US)
  Receive Date: 20141113
  Receipt Date: 20141113
  Transmission Date: 20150529
  Serious: Yes (Hospitalization)
  Sender: FDA-Public Use
  Company Number: PHEH2014US021734

PATIENT
  Sex: Male
  Weight: 77.7 kg

DRUGS (1)
  1. EXJADE [Suspect]
     Active Substance: DEFERASIROX
     Indication: MYELODYSPLASTIC SYNDROME
     Dosage: 2 DF, QD
     Route: 048
     Dates: start: 201408

REACTIONS (5)
  - Dehydration [Unknown]
  - Asthenia [Unknown]
  - Haemoglobin decreased [Unknown]
  - Malaise [Unknown]
  - Nausea [Unknown]
